FAERS Safety Report 25875028 (Version 1)
Quarter: 2025Q4

REPORT INFORMATION
  Report Type: Spontaneous
  Country: CA (occurrence: CA)
  Receive Date: 20251003
  Receipt Date: 20251003
  Transmission Date: 20260117
  Serious: Yes (Other)
  Sender: BAXTER
  Company Number: CA-BAXTER-2025BAX021825

PATIENT
  Age: 69 Year
  Sex: Female

DRUGS (2)
  1. NOREPINEPHRINE BITARTRATE [Suspect]
     Active Substance: NOREPINEPHRINE BITARTRATE
     Indication: Blood pressure management
     Dosage: UNK
     Route: 065
     Dates: start: 20250803
  2. NOREPINEPHRINE BITARTRATE [Suspect]
     Active Substance: NOREPINEPHRINE BITARTRATE
     Indication: Cerebral hypoperfusion

REACTIONS (4)
  - Cerebral hypoperfusion [Unknown]
  - Blood pressure decreased [Unknown]
  - CSF pressure decreased [Unknown]
  - Device infusion issue [Unknown]

NARRATIVE: CASE EVENT DATE: 20250803
